FAERS Safety Report 16495481 (Version 7)
Quarter: 2020Q2

REPORT INFORMATION
  Report Type: Report from Study
  Country: FR (occurrence: FR)
  Receive Date: 20190628
  Receipt Date: 20200630
  Transmission Date: 20200713
  Serious: Yes (Hospitalization, Other)
  Sender: FDA-Public Use
  Company Number: FR-INCYTE CORPORATION-2019IN003102

PATIENT

DRUGS (3)
  1. JAKAVI [Suspect]
     Active Substance: RUXOLITINIB
     Dosage: 50 MG, PER DAY
     Route: 048
     Dates: start: 20190529, end: 20200207
  2. JAKAVI [Suspect]
     Active Substance: RUXOLITINIB
     Indication: MYELOFIBROSIS
     Dosage: 30 MG, PER DAY
     Route: 048
     Dates: start: 20190226, end: 20190528
  3. JAKAVI [Suspect]
     Active Substance: RUXOLITINIB
     Dosage: 50 MG, PER DAY
     Route: 048
     Dates: start: 20200214

REACTIONS (9)
  - Muscle rupture [Recovered/Resolved]
  - Platelet morphology abnormal [Unknown]
  - Neutrophil count increased [Unknown]
  - Influenza [Recovered/Resolved]
  - Haematoma [Recovered/Resolved]
  - Anaemia [Not Recovered/Not Resolved]
  - Pain in extremity [Recovered/Resolved]
  - Haematocrit decreased [Unknown]
  - White blood cell count decreased [Unknown]

NARRATIVE: CASE EVENT DATE: 20190305
